FAERS Safety Report 24032420 (Version 1)
Quarter: 2024Q3

REPORT INFORMATION
  Report Type: Spontaneous
  Country: US (occurrence: US)
  Receive Date: 20240701
  Receipt Date: 20240701
  Transmission Date: 20241016
  Serious: Yes (Other)
  Sender: STRIDES
  Company Number: US-STRIDES ARCOLAB LIMITED-2024SP007660

PATIENT

DRUGS (2)
  1. ATENOLOL [Interacting]
     Active Substance: ATENOLOL
     Indication: Acute myocardial infarction
     Dosage: UNK
     Route: 065
  2. CARVEDILOL [Interacting]
     Active Substance: CARVEDILOL
     Indication: Acute myocardial infarction
     Dosage: UNK
     Route: 065

REACTIONS (4)
  - Drug interaction [Unknown]
  - Product prescribing error [Unknown]
  - Bradycardia [Unknown]
  - Hypotension [Unknown]
